FAERS Safety Report 15917392 (Version 2)
Quarter: 2019Q1

REPORT INFORMATION
  Report Type: Spontaneous
  Country: ID (occurrence: ID)
  Receive Date: 20190205
  Receipt Date: 20190315
  Transmission Date: 20190417
  Serious: Yes (Hospitalization)
  Sender: FDA-Public Use
  Company Number: ID-B.I. PHARMACEUTICALS,INC./RIDGEFIELD-2019-BI-004350

PATIENT
  Age: 6 Decade
  Sex: Female

DRUGS (3)
  1. GILOTRIF [Suspect]
     Active Substance: AFATINIB
     Indication: LUNG ADENOCARCINOMA
     Route: 065
  2. GILOTRIF [Suspect]
     Active Substance: AFATINIB
     Indication: EGFR GENE MUTATION
     Route: 048
  3. GILOTRIF [Suspect]
     Active Substance: AFATINIB
     Dosage: DILUTED AND DRINK HALF OF IT
     Route: 065

REACTIONS (5)
  - Anaemia [Recovering/Resolving]
  - Gait disturbance [Unknown]
  - Haemoglobin decreased [Recovering/Resolving]
  - Hepatic function abnormal [Unknown]
  - Incorrect dosage administered [Unknown]
